FAERS Safety Report 10028762 (Version 1)
Quarter: 2014Q1

REPORT INFORMATION
  Report Type: Spontaneous
  Country: GB (occurrence: GB)
  Receive Date: 20140321
  Receipt Date: 20140321
  Transmission Date: 20141002
  Serious: Yes (Hospitalization)
  Sender: FDA-Public Use
  Company Number: GB-ABBVIE-14P-167-1215064-00

PATIENT
  Sex: Male
  Weight: 99 kg

DRUGS (1)
  1. CREON [Suspect]
     Indication: PRODUCT USED FOR UNKNOWN INDICATION
     Dosage: 20 X CREON 40000 CAPSULES THREE TIMES DAILY. DAILY DOSE: 2,400,000 UNITS.
     Route: 048

REACTIONS (3)
  - Overdose [Unknown]
  - Bone disorder [Unknown]
  - Spinal disorder [Unknown]
